FAERS Safety Report 5685402-8 (Version None)
Quarter: 2008Q1

REPORT INFORMATION
  Report Type: 
  Country: None (occurrence: None)
  Receive Date: 20080328
  Receipt Date: 20080316
  Transmission Date: 20080703
  Serious: Yes (Other)
  Sender: FDA-Public Use
  Company Number: US-PFIZER INC-2008025882

PATIENT
  Sex: Female
  Weight: 63.636 kg

DRUGS (11)
  1. CHANTIX [Suspect]
     Indication: SMOKING CESSATION THERAPY
  2. ZITHROMAX [Suspect]
     Indication: INFECTION
  3. ZITHROMAX [Suspect]
     Indication: BRONCHITIS
  4. ZANTAC [Concomitant]
  5. PREMARIN [Concomitant]
  6. LASIX [Concomitant]
  7. REQUIP [Concomitant]
  8. CEFTIN [Concomitant]
     Dates: start: 20080101, end: 20080101
  9. AUGMENTIN '125' [Concomitant]
  10. PREDNISONE TAB [Concomitant]
  11. ALBUTEROL [Concomitant]

REACTIONS (3)
  - HEADACHE [None]
  - INFECTION [None]
  - RESPIRATORY TRACT INFECTION [None]
